FAERS Safety Report 16584867 (Version 1)
Quarter: 2019Q3

REPORT INFORMATION
  Report Type: Spontaneous
  Country: ZA (occurrence: ZA)
  Receive Date: 20190717
  Receipt Date: 20190717
  Transmission Date: 20191004
  Serious: Yes (Death, Other)
  Sender: FDA-Public Use
  Company Number: ZA-JNJFOC-20190707802

PATIENT
  Age: 69 Year
  Sex: Female

DRUGS (11)
  1. ETHIONAMIDE [Suspect]
     Active Substance: ETHIONAMIDE
     Indication: TUBERCULOSIS
     Route: 048
     Dates: start: 20181204
  2. PYRAZINAMIDE. [Suspect]
     Active Substance: PYRAZINAMIDE
     Indication: TUBERCULOSIS
     Route: 048
     Dates: start: 20181204
  3. ROCEPHIN [Concomitant]
     Active Substance: CEFTRIAXONE SODIUM
     Route: 065
  4. CLOFAZIMINE [Suspect]
     Active Substance: CLOFAZIMINE
     Indication: TUBERCULOSIS
     Route: 048
     Dates: start: 20181204
  5. LASIX [Concomitant]
     Active Substance: FUROSEMIDE
     Route: 065
  6. SIRTURO [Suspect]
     Active Substance: BEDAQUILINE FUMARATE
     Indication: TUBERCULOSIS
     Route: 048
     Dates: start: 20181204
  7. PAS [Suspect]
     Active Substance: AMINOSALICYLIC ACID
     Indication: TUBERCULOSIS
     Route: 048
     Dates: start: 20181204
  8. PYRIDOXINE [Concomitant]
     Active Substance: PYRIDOXINE
  9. DELAMANID [Suspect]
     Active Substance: DELAMANID
     Indication: TUBERCULOSIS
     Route: 048
     Dates: start: 20190129
  10. TERIZIDONE [Suspect]
     Active Substance: TERIZIDONE
     Indication: TUBERCULOSIS
     Route: 048
     Dates: start: 20181204
  11. ELTROXIN [Concomitant]
     Active Substance: LEVOTHYROXINE

REACTIONS (10)
  - Cardiac failure congestive [Fatal]
  - Acute myocardial infarction [Unknown]
  - Ventricular extrasystoles [Unknown]
  - Blood potassium decreased [Unknown]
  - Electrocardiogram QT prolonged [Unknown]
  - Blood alkaline phosphatase increased [Unknown]
  - Atrioventricular block first degree [Unknown]
  - Gamma-glutamyltransferase increased [Unknown]
  - Supraventricular extrasystoles [Unknown]
  - Alanine aminotransferase increased [Unknown]

NARRATIVE: CASE EVENT DATE: 20181212
